FAERS Safety Report 14515946 (Version 2)
Quarter: 2018Q1

REPORT INFORMATION
  Report Type: Report from Study
  Country: CA (occurrence: CA)
  Receive Date: 20180211
  Receipt Date: 20180306
  Transmission Date: 20180509
  Serious: Yes (Other)
  Sender: FDA-Public Use
  Company Number: CA-UCBSA-2017032228

PATIENT
  Age: 54 Year
  Sex: Male
  Weight: 122.4 kg

DRUGS (2)
  1. CERTOLIZUMAB PEGOL RA [Suspect]
     Active Substance: CERTOLIZUMAB PEGOL
     Indication: PSORIATIC ARTHROPATHY
     Dosage: 200 MG, EV 2 WEEKS(QOW)
     Route: 058
     Dates: start: 20170919, end: 201801
  2. CERTOLIZUMAB PEGOL RA [Suspect]
     Active Substance: CERTOLIZUMAB PEGOL
     Indication: RHEUMATOID ARTHRITIS
     Dosage: 400 MG, EV 2 WEEKS(QOW) X 3 (AT 0, 2 AND 4 WEEKS)
     Route: 058
     Dates: start: 20170808, end: 20170905

REACTIONS (7)
  - Hot flush [Recovered/Resolved]
  - Tinnitus [Recovered/Resolved]
  - Oropharyngeal pain [Unknown]
  - Tooth disorder [Unknown]
  - Salmonellosis [Not Recovered/Not Resolved]
  - Wheezing [Unknown]
  - Bacterial disease carrier [Unknown]

NARRATIVE: CASE EVENT DATE: 2017
